FAERS Safety Report 6022359-4 (Version None)
Quarter: 2008Q4

REPORT INFORMATION
  Report Type: 
  Country: None (occurrence: None)
  Receive Date: 20081221
  Receipt Date: 20081221
  Transmission Date: 20090506
  Serious: Yes (Life-Threatening)
  Sender: FDA-Public Use
  Company Number: None

PATIENT
  Age: 65 Year
  Sex: Male
  Weight: 113.3993 kg

DRUGS (1)
  1. LEVOXYL [Suspect]
     Indication: ADVERSE REACTION
     Dosage: 125 MCG ONCE IN AM NO FOOD PO
     Route: 048
     Dates: start: 20081217, end: 20081218

REACTIONS (11)
  - ANGINA PECTORIS [None]
  - ARTHRALGIA [None]
  - BLOOD PRESSURE FLUCTUATION [None]
  - DISORIENTATION [None]
  - EYE DISORDER [None]
  - HEART RATE IRREGULAR [None]
  - LETHARGY [None]
  - OCULAR HYPERAEMIA [None]
  - OEDEMA PERIPHERAL [None]
  - PHARYNGEAL OEDEMA [None]
  - RASH MACULAR [None]
